FAERS Safety Report 6743650-X (Version None)
Quarter: 2010Q2

REPORT INFORMATION
  Report Type: 
  Country: None (occurrence: None)
  Receive Date: 20100527
  Receipt Date: 20100518
  Transmission Date: 20101027
  Serious: Yes (Disabling, Other)
  Sender: FDA-Public Use
  Company Number: US-SANOFI-AVENTIS-2010SA029107

PATIENT
  Age: 79 Year
  Sex: Female

DRUGS (3)
  1. PLAVIX [Suspect]
     Route: 048
     Dates: start: 20080101
  2. LIPITOR [Concomitant]
  3. LOVASTATIN [Concomitant]

REACTIONS (5)
  - ALOPECIA [None]
  - CONSTIPATION [None]
  - FEELING ABNORMAL [None]
  - HIP FRACTURE [None]
  - HYPOAESTHESIA [None]
